FAERS Safety Report 20598168 (Version 1)
Quarter: 2022Q1

REPORT INFORMATION
  Report Type: Spontaneous
  Country: US (occurrence: US)
  Receive Date: 20220315
  Receipt Date: 20220315
  Transmission Date: 20220423
  Serious: No
  Sender: FDA-Public Use
  Company Number: US-PFIZER INC-2021689850

PATIENT
  Age: 74 Year
  Sex: Female
  Weight: 58.51 kg

DRUGS (1)
  1. AROMASIN [Suspect]
     Active Substance: EXEMESTANE
     Indication: Breast cancer female
     Dosage: UNK
     Dates: start: 2021, end: 2021

REACTIONS (7)
  - Bone pain [Unknown]
  - Myalgia [Unknown]
  - Arthralgia [Unknown]
  - Osteoporosis [Unknown]
  - Arthritis [Unknown]
  - Back pain [Unknown]
  - Gait disturbance [Unknown]

NARRATIVE: CASE EVENT DATE: 20210101
